FAERS Safety Report 6646808-3 (Version None)
Quarter: 2010Q1

REPORT INFORMATION
  Report Type: 
  Country: None (occurrence: None)
  Receive Date: 20100323
  Receipt Date: 20100315
  Transmission Date: 20100710
  Serious: Yes (Hospitalization)
  Sender: FDA-Public Use
  Company Number: US-BRISTOL-MYERS SQUIBB COMPANY-15018849

PATIENT
  Age: 63 Year
  Sex: Male

DRUGS (3)
  1. COUMADIN [Suspect]
     Indication: ATRIAL FIBRILLATION
     Dosage: TAB
     Route: 048
     Dates: start: 20100205
  2. LOVENOX [Suspect]
     Route: 042
  3. MOBIC [Suspect]
     Route: 048

REACTIONS (1)
  - VASCULAR PSEUDOANEURYSM [None]
